FAERS Safety Report 4743715-8 (Version None)
Quarter: 2005Q3

REPORT INFORMATION
  Report Type: 
  Country: None (occurrence: None)
  Receive Date: 20050812
  Receipt Date: 20050606
  Transmission Date: 20060218
  Serious: Yes (Other)
  Sender: FDA-Public Use
  Company Number: 13148

PATIENT
  Age: 26 Year
  Sex: Female

DRUGS (3)
  1. WELLBUTRIN [Suspect]
     Indication: MAJOR DEPRESSION
     Dosage: 150MG PER DAY
     Dates: start: 20040401, end: 20040430
  2. LEXAPRO [Suspect]
     Indication: DRUG USE FOR UNKNOWN INDICATION
     Dosage: 10MG PER DAY
     Dates: start: 20040430, end: 20040910
  3. UNSPECIFIED SSRI [Concomitant]

REACTIONS (1)
  - TACHYCARDIA [None]
